FAERS Safety Report 9798253 (Version 1)
Quarter: 2014Q1

REPORT INFORMATION
  Report Type: Spontaneous
  Country: US (occurrence: US)
  Receive Date: 20140106
  Receipt Date: 20140106
  Transmission Date: 20141002
  Serious: No
  Sender: FDA-Public Use
  Company Number: US-PFIZER INC-2014001361

PATIENT
  Age: 39 Year
  Sex: Female
  Weight: 126.98 kg

DRUGS (16)
  1. LYRICA [Suspect]
     Indication: DIABETIC NEUROPATHY
     Dosage: 1000 MG (400MG IN THE MORNING, 200MG AT LUNCH TIME AND 400MG AT BED TIME), IN A DAY
     Route: 048
     Dates: start: 2010, end: 201306
  2. LYRICA [Suspect]
     Indication: FIBROMYALGIA
  3. CYMBALTA [Concomitant]
     Dosage: UNK
  4. PREDNISONE [Concomitant]
     Dosage: UNK
  5. NEXIUM [Concomitant]
     Dosage: UNK
  6. SYNTHROID [Concomitant]
     Dosage: UNK
  7. METFORMIN [Concomitant]
     Dosage: UNK
  8. THEOPHYLLINE [Concomitant]
     Indication: CHRONIC OBSTRUCTIVE PULMONARY DISEASE
     Dosage: UNK
  9. LASIX [Concomitant]
     Dosage: UNK
  10. POTASSIUM [Concomitant]
     Dosage: 20 MG, 4X/DAY
  11. TRAZODONE [Concomitant]
     Dosage: UNK
  12. TIZANIDINE [Concomitant]
     Dosage: UNK
  13. VITAMIN D [Concomitant]
     Dosage: 50000 UNITS, 2X/DAY
  14. DALIRESP [Concomitant]
     Dosage: UNK
  15. XANAX [Concomitant]
     Dosage: UNK
  16. LORTAB [Concomitant]
     Dosage: UNK

REACTIONS (4)
  - Gait disturbance [Recovered/Resolved]
  - Paraesthesia [Recovered/Resolved]
  - Burning sensation [Recovered/Resolved]
  - Pain in extremity [Recovered/Resolved]
